FAERS Safety Report 9851933 (Version 1)
Quarter: 2013Q4

REPORT INFORMATION
  Report Type: Spontaneous
  Country: US (occurrence: None)
  Receive Date: 20131127
  Receipt Date: 20131127
  Transmission Date: 20140711
  Serious: Yes (Other)
  Sender: FDA-Public Use
  Company Number: 223035LEO

PATIENT
  Age: 60 Year
  Sex: Female

DRUGS (1)
  1. PICATO [Suspect]
     Indication: PRECANCEROUS CELLS PRESENT
     Route: 061
     Dates: start: 20130804, end: 20130805

REACTIONS (4)
  - Lacrimation increased [None]
  - Eye irritation [None]
  - Accidental exposure to product [None]
  - Drug administered at inappropriate site [None]
